FAERS Safety Report 8204118-7 (Version None)
Quarter: 2012Q1

REPORT INFORMATION
  Report Type: 
  Country: None (occurrence: None)
  Receive Date: 20120309
  Receipt Date: 20120306
  Transmission Date: 20120608
  Serious: Yes (Other)
  Sender: FDA-Public Use
  Company Number: ZYD-11-AE-062

PATIENT
  Age: 36 Week
  Sex: Male

DRUGS (4)
  1. RIBAVIRIN [Suspect]
     Dates: start: 20090612, end: 20100514
  2. PRILOSEC [Concomitant]
  3. PEGASYS [Suspect]
     Dosage: 80MCG-WEEKLY
     Dates: start: 20090612, end: 20100507
  4. ZYRTEC [Concomitant]

REACTIONS (6)
  - UMBILICAL CORD VASCULAR DISORDER [None]
  - CAESAREAN SECTION [None]
  - PREMATURE BABY [None]
  - JAUNDICE NEONATAL [None]
  - HAEMOGLOBIN DECREASED [None]
  - MATERNAL DRUGS AFFECTING FOETUS [None]
